FAERS Safety Report 8157164-6 (Version None)
Quarter: 2012Q1

REPORT INFORMATION
  Report Type: 
  Country: None (occurrence: None)
  Receive Date: 20120222
  Receipt Date: 20120214
  Transmission Date: 20120608
  Serious: Yes (Hospitalization, Disabling)
  Sender: FDA-Public Use
  Company Number: PHHY2011GB103090

PATIENT
  Age: 79 Year
  Sex: Male

DRUGS (6)
  1. XARELTO [Suspect]
     Indication: THROMBOSIS PROPHYLAXIS
     Dosage: 10 MG, UNK
     Route: 048
     Dates: start: 20110726, end: 20110830
  2. LERCANIDIPINE [Suspect]
     Indication: HYPERTENSION
     Dosage: 10 MG, UNK
     Route: 048
     Dates: start: 20110628, end: 20110907
  3. CLARITHROMYCIN [Suspect]
     Indication: EAR INFECTION
     Dosage: 500 MG, BID
     Dates: start: 20110825, end: 20110901
  4. ACETAMINOPHEN [Concomitant]
  5. ZOLPIDEM [Concomitant]
  6. TRAMADOL HCL [Concomitant]

REACTIONS (6)
  - OEDEMA PERIPHERAL [None]
  - PLEURAL EFFUSION [None]
  - PERICARDIAL EFFUSION [None]
  - DYSPNOEA [None]
  - LIVER FUNCTION TEST ABNORMAL [None]
  - CREPITATIONS [None]
